FAERS Safety Report 4491854-1 (Version None)
Quarter: 2004Q4

REPORT INFORMATION
  Report Type: 
  Country: None (occurrence: None)
  Receive Date: 20041028
  Receipt Date: 20041028
  Transmission Date: 20050328
  Serious: Yes (Hospitalization)
  Sender: FDA-Public Use
  Company Number: None

PATIENT
  Sex: Male
  Weight: 88.905 kg

DRUGS (7)
  1. CLOZAPINE [Suspect]
     Indication: SCHIZOPHRENIA
     Dosage: 137.5MG DAILY ORAL
     Route: 048
     Dates: start: 20040622, end: 20040709
  2. DIVALPROEX SODIUM [Concomitant]
  3. HALOPERIDOL [Concomitant]
  4. BENZTROPINE MESYLATE [Concomitant]
  5. LORAZEPAM [Concomitant]
  6. TRAZODONE HCL [Concomitant]
  7. LEVOTHYROXINE SODIUM [Concomitant]

REACTIONS (1)
  - LEUKOCYTOCLASTIC VASCULITIS [None]
